FAERS Safety Report 6915081-0 (Version None)
Quarter: 2010Q3

REPORT INFORMATION
  Report Type: 
  Country: None (occurrence: None)
  Receive Date: 20100809
  Receipt Date: 20100728
  Transmission Date: 20110219
  Serious: Yes (Other)
  Sender: FDA-Public Use
  Company Number: GB-PFIZER INC-2010095135

PATIENT
  Age: 45 Year
  Sex: Female

DRUGS (1)
  1. SALAZOPYRIN [Suspect]
     Indication: COLITIS
     Dosage: 500 MG, 4X/DAY

REACTIONS (2)
  - BLOOD COUNT ABNORMAL [None]
  - NEUTROPENIA [None]
